FAERS Safety Report 7878944-8 (Version None)
Quarter: 2011Q4

REPORT INFORMATION
  Report Type: 
  Country: None (occurrence: None)
  Receive Date: 20111021
  Receipt Date: 20110812
  Transmission Date: 20120403
  Serious: Yes (Other)
  Sender: FDA-Public Use
  Company Number: ALL1-2011-02755

PATIENT
  Age: 8 Year
  Sex: Male

DRUGS (1)
  1. VYVANSE [Suspect]
     Indication: PRODUCT USED FOR UNKNOWN INDICATION
     Dosage: 30 MG , ORAL
     Route: 048
     Dates: start: 20110101, end: 20110805

REACTIONS (3)
  - HALLUCINATION, AUDITORY [None]
  - INSOMNIA [None]
  - PARANOIA [None]
